FAERS Safety Report 5781724-0 (Version None)
Quarter: 2008Q2

REPORT INFORMATION
  Report Type: 
  Country: None (occurrence: None)
  Receive Date: 20080623
  Receipt Date: 20071002
  Transmission Date: 20081010
  Serious: No
  Sender: FDA-Public Use
  Company Number: US-ASTRAZENECA-2007UW22926

PATIENT
  Sex: Female

DRUGS (3)
  1. RHINOCORT [Suspect]
     Route: 045
  2. LEXAPRO [Concomitant]
  3. SLEEPING PILLS [Concomitant]

REACTIONS (1)
  - SOMNOLENCE [None]
